FAERS Safety Report 5689057-8 (Version None)
Quarter: 2008Q1

REPORT INFORMATION
  Report Type: 
  Country: None (occurrence: None)
  Receive Date: 20080331
  Receipt Date: 20080325
  Transmission Date: 20080703
  Serious: Yes (Hospitalization)
  Sender: FDA-Public Use
  Company Number: B0513721A

PATIENT
  Age: 86 Year
  Sex: Male

DRUGS (9)
  1. DIGOXIN [Suspect]
  2. ACETYLSALICYLIC ACID SRT [Suspect]
  3. ATENOLOL [Suspect]
  4. CHLORPHENIRAMINE MALEATE [Suspect]
  5. BENDROFLUMETHIAZIDE [Suspect]
  6. URSODIOL [Suspect]
  7. LACTULOSE [Suspect]
     Dosage: 20ML PER DAY
     Route: 048
  8. PREDNISOLONE [Suspect]
  9. AQUEOUS CREAM [Suspect]

REACTIONS (1)
  - JAUNDICE [None]
